FAERS Safety Report 5722847-1 (Version None)
Quarter: 2008Q2

REPORT INFORMATION
  Report Type: 
  Country: None (occurrence: None)
  Receive Date: 20080429
  Receipt Date: 20080102
  Transmission Date: 20081010
  Serious: No
  Sender: FDA-Public Use
  Company Number: US-ASTRAZENECA-2008UW00213

PATIENT
  Sex: Female

DRUGS (2)
  1. NEXIUM [Suspect]
  2. EVISTA [Concomitant]

REACTIONS (1)
  - DYSPEPSIA [None]
